FAERS Safety Report 7356580-X (Version None)
Quarter: 2011Q1

REPORT INFORMATION
  Report Type: 
  Country: None (occurrence: None)
  Receive Date: 20110316
  Receipt Date: 20110303
  Transmission Date: 20110831
  Serious: Yes (Other)
  Sender: FDA-Public Use
  Company Number: PHHY2011CA16622

PATIENT
  Sex: Female

DRUGS (2)
  1. BIAXIN [Concomitant]
     Dosage: 500 MG, BID
  2. ACLASTA [Suspect]
     Indication: OSTEOPOROSIS
     Route: 042
     Dates: start: 20100322

REACTIONS (8)
  - ARRHYTHMIA [None]
  - BLOOD GLUCOSE DECREASED [None]
  - BONE PAIN [None]
  - DRUG HYPERSENSITIVITY [None]
  - ARTHRALGIA [None]
  - MYALGIA [None]
  - VISUAL ACUITY REDUCED [None]
  - PYREXIA [None]
